FAERS Safety Report 6542029-3 (Version None)
Quarter: 2010Q1

REPORT INFORMATION
  Report Type: 
  Country: None (occurrence: None)
  Receive Date: 20100119
  Receipt Date: 20100111
  Transmission Date: 20100710
  Serious: Yes (Death, Hospitalization)
  Sender: FDA-Public Use
  Company Number: US-AMGEN-QUU358317

PATIENT
  Sex: Male
  Weight: 159.4 kg

DRUGS (7)
  1. NEULASTA [Suspect]
     Indication: CHEMOTHERAPY
     Dates: start: 20090817, end: 20091022
  2. ALOXI [Concomitant]
     Dates: start: 20090813, end: 20091021
  3. DECADRON [Concomitant]
     Dates: start: 20090813, end: 20091021
  4. EMEND [Concomitant]
     Dates: start: 20090813, end: 20091021
  5. CISPLATIN [Concomitant]
     Dates: start: 20090813, end: 20091021
  6. MANNITOL [Concomitant]
     Dates: start: 20090813, end: 20091021
  7. ETOPOSIDE [Concomitant]
     Dates: start: 20090813, end: 20091021

REACTIONS (2)
  - CARDIAC FAILURE [None]
  - NEUTROPENIA [None]
